FAERS Safety Report 12929553 (Version 1)
Quarter: 2016Q4

REPORT INFORMATION
  Report Type: Spontaneous
  Country: US (occurrence: US)
  Receive Date: 20161110
  Receipt Date: 20161110
  Transmission Date: 20170207
  Serious: Yes (Life-Threatening)
  Sender: FDA-Public Use
  Company Number: US-SA-2016SA203306

PATIENT
  Age: 61 Year
  Sex: Male

DRUGS (1)
  1. ENOXAPARIN SODIUM. [Suspect]
     Active Substance: ENOXAPARIN SODIUM
     Indication: DEEP VEIN THROMBOSIS
     Route: 065

REACTIONS (5)
  - Abdominal pain [Recovering/Resolving]
  - Tachycardia [Recovering/Resolving]
  - Hypovolaemic shock [Recovering/Resolving]
  - Hypotension [Recovering/Resolving]
  - Splenic rupture [Recovering/Resolving]
